FAERS Safety Report 9058303 (Version 1)
Quarter: 2013Q1

REPORT INFORMATION
  Report Type: Report from Study
  Country: CA (occurrence: CA)
  Receive Date: 20130211
  Receipt Date: 20130211
  Transmission Date: 20140127
  Serious: Yes (Other)
  Sender: FDA-Public Use
  Company Number: CA-JNJFOC-20130200353

PATIENT
  Age: 43 None
  Sex: Male
  Weight: 97 kg

DRUGS (2)
  1. REMICADE [Suspect]
     Indication: CROHN^S DISEASE
     Route: 042
     Dates: start: 20130129
  2. REMICADE [Suspect]
     Indication: CROHN^S DISEASE
     Route: 042
     Dates: start: 20110630

REACTIONS (7)
  - Hypersensitivity [Recovering/Resolving]
  - Eye movement disorder [Recovering/Resolving]
  - Infusion related reaction [Recovering/Resolving]
  - Depressed level of consciousness [Recovering/Resolving]
  - Vomiting [Unknown]
  - Pallor [Unknown]
  - Hyperhidrosis [Unknown]
